FAERS Safety Report 17898371 (Version 2)
Quarter: 2020Q3

REPORT INFORMATION
  Report Type: Report from Study
  Country: DE (occurrence: DE)
  Receive Date: 20200615
  Receipt Date: 20200706
  Transmission Date: 20201103
  Serious: Yes (Hospitalization, Other)
  Sender: FDA-Public Use
  Company Number: DE-BRISTOL-MYERS SQUIBB COMPANY-BMS-2019-085115

PATIENT
  Age: 66 Year
  Sex: Female

DRUGS (6)
  1. ENCORAFENIB [Concomitant]
     Active Substance: ENCORAFENIB
     Indication: PRODUCT USED FOR UNKNOWN INDICATION
     Dosage: UNK
     Route: 065
  2. PREDNISOLONE. [Concomitant]
     Active Substance: PREDNISOLONE
     Indication: PRODUCT USED FOR UNKNOWN INDICATION
     Route: 065
  3. NIVOLUMAB [Suspect]
     Active Substance: NIVOLUMAB
     Indication: MALIGNANT MELANOMA
     Dosage: 129 MILLIGRAM, Q2WK
     Route: 042
     Dates: start: 20181130, end: 20190815
  4. IPILIMUMAB [Concomitant]
     Active Substance: IPILIMUMAB
     Indication: MALIGNANT MELANOMA
     Dosage: UNK
     Route: 065
  5. NIVOLUMAB [Suspect]
     Active Substance: NIVOLUMAB
     Dosage: 42 MILLIGRAM, Q4WK
     Route: 042
     Dates: end: 20200303
  6. BINIMETINIB [Concomitant]
     Active Substance: BINIMETINIB
     Indication: PRODUCT USED FOR UNKNOWN INDICATION
     Dosage: UNK
     Route: 065

REACTIONS (15)
  - Fatigue [Unknown]
  - Diarrhoea [Recovering/Resolving]
  - Weight decreased [Unknown]
  - Influenza like illness [Recovered/Resolved]
  - Oropharyngeal pain [Unknown]
  - Jaw disorder [Unknown]
  - Blindness [Unknown]
  - Peripheral motor neuropathy [Recovering/Resolving]
  - Dry eye [Unknown]
  - Rash [Unknown]
  - Malignant neoplasm progression [Unknown]
  - Colour blindness [Unknown]
  - Giant cell arteritis [Unknown]
  - Ear pain [Unknown]
  - Optic nerve disorder [Unknown]

NARRATIVE: CASE EVENT DATE: 20190813
